FAERS Safety Report 6889562-2 (Version None)
Quarter: 2010Q3

REPORT INFORMATION
  Report Type: 
  Country: None (occurrence: None)
  Receive Date: 20100730
  Receipt Date: 20080325
  Transmission Date: 20110219
  Serious: No
  Sender: FDA-Public Use
  Company Number: US-PFIZER INC-2008017859

PATIENT
  Sex: Female
  Weight: 99.79 kg

DRUGS (4)
  1. LIPITOR [Suspect]
     Indication: BLOOD CHOLESTEROL INCREASED
     Dates: end: 20070101
  2. VYTORIN [Concomitant]
     Dates: start: 20070101
  3. PAXIL [Concomitant]
     Indication: ANXIETY
  4. DURADRIN [Concomitant]
     Indication: MIGRAINE

REACTIONS (1)
  - HEPATIC ENZYME INCREASED [None]
